FAERS Safety Report 10245166 (Version 2)
Quarter: 2014Q3

REPORT INFORMATION
  Report Type: Report from Study
  Country: TR (occurrence: TR)
  Receive Date: 20140618
  Receipt Date: 20140929
  Transmission Date: 20150326
  Serious: Yes (Hospitalization)
  Sender: FDA-Public Use
  Company Number: TR-US-EMD SERONO, INC.-7298939

PATIENT
  Age: 46 Year
  Sex: Female
  Weight: 80 kg

DRUGS (1)
  1. REBIF [Suspect]
     Active Substance: INTERFERON BETA-1A
     Indication: MULTIPLE SCLEROSIS
     Dates: start: 201003, end: 201406

REACTIONS (1)
  - Breast cancer stage II [Not Recovered/Not Resolved]

NARRATIVE: CASE EVENT DATE: 201404
